FAERS Safety Report 21724823 (Version 5)
Quarter: 2023Q1

REPORT INFORMATION
  Report Type: Report from Study
  Country: IT (occurrence: IT)
  Receive Date: 20221214
  Receipt Date: 20230116
  Transmission Date: 20230418
  Serious: Yes (Other)
  Sender: FDA-Public Use
  Company Number: IT-JNJFOC-20221209934

PATIENT

DRUGS (14)
  1. SIMPONI [Suspect]
     Active Substance: GOLIMUMAB
     Indication: Rheumatoid arthritis
     Route: 058
  2. SIMPONI [Suspect]
     Active Substance: GOLIMUMAB
     Indication: Psoriatic arthropathy
  3. SIMPONI [Suspect]
     Active Substance: GOLIMUMAB
     Indication: Ankylosing spondylitis
  4. STELARA [Suspect]
     Active Substance: USTEKINUMAB
     Indication: Rheumatoid arthritis
     Route: 058
  5. STELARA [Suspect]
     Active Substance: USTEKINUMAB
     Indication: Psoriatic arthropathy
  6. STELARA [Suspect]
     Active Substance: USTEKINUMAB
     Indication: Ankylosing spondylitis
  7. REMICADE [Suspect]
     Active Substance: INFLIXIMAB
     Indication: Rheumatoid arthritis
     Route: 041
  8. REMICADE [Suspect]
     Active Substance: INFLIXIMAB
     Indication: Psoriatic arthropathy
  9. REMICADE [Suspect]
     Active Substance: INFLIXIMAB
     Indication: Ankylosing spondylitis
  10. METHOTREXATE [Concomitant]
     Active Substance: METHOTREXATE
     Indication: Product used for unknown indication
  11. SULFASALAZINE [Concomitant]
     Active Substance: SULFASALAZINE
     Indication: Product used for unknown indication
  12. IDROSSICLOROCHINA DOC [Concomitant]
     Indication: Product used for unknown indication
  13. LEFLUNOMIDE [Concomitant]
     Active Substance: LEFLUNOMIDE
     Indication: Product used for unknown indication
  14. CYCLOSPORINE [Concomitant]
     Active Substance: CYCLOSPORINE
     Indication: Product used for unknown indication

REACTIONS (25)
  - Syncope [Unknown]
  - Herpes virus infection [Unknown]
  - Tonsillar hypertrophy [Unknown]
  - Pyrexia [Unknown]
  - Injection site reaction [Unknown]
  - Asthenia [Unknown]
  - Fatigue [Unknown]
  - Rash [Unknown]
  - Hyperhidrosis [Unknown]
  - Headache [Unknown]
  - Confusional state [Unknown]
  - Cough [Unknown]
  - Tonsillitis [Unknown]
  - Oropharyngeal pain [Unknown]
  - Nausea [Unknown]
  - Myalgia [Unknown]
  - Diarrhoea [Unknown]
  - Therapeutic product ineffective [Unknown]
  - Pruritus [Unknown]
  - Skin exfoliation [Unknown]
  - Alopecia [Unknown]
  - Somnolence [Unknown]
  - Erythema [Unknown]
  - Anaemia [Unknown]
  - Vertigo [Unknown]
